FAERS Safety Report 10413949 (Version 1)
Quarter: 2014Q3

REPORT INFORMATION
  Report Type: Spontaneous
  Country: IN (occurrence: None)
  Receive Date: 20140825
  Receipt Date: 20140825
  Transmission Date: 20150326
  Serious: Yes (Hospitalization, Other)
  Sender: FDA-Public Use
  Company Number: AUR-APL-2014-08996

PATIENT
  Age: 21 Year
  Sex: Male

DRUGS (4)
  1. PHENOBARBITONE (PHENOBARBITAL) [Concomitant]
  2. LEVOTHYROXINE [Concomitant]
     Active Substance: LEVOTHYROXINE
  3. CLOBAZAM [Concomitant]
     Active Substance: CLOBAZAM
  4. DIVALPROEX [Suspect]
     Active Substance: DIVALPROEX SODIUM
     Indication: GENERALISED TONIC-CLONIC SEIZURE

REACTIONS (10)
  - Gait disturbance [None]
  - Somnolence [None]
  - Depressed level of consciousness [None]
  - Ataxia [None]
  - Toxicity to various agents [None]
  - Cerebral ventricle dilatation [None]
  - Stupor [None]
  - Toxic encephalopathy [None]
  - Disorientation [None]
  - Encephalopathy [None]
